FAERS Safety Report 17692486 (Version 1)
Quarter: 2020Q2

REPORT INFORMATION
  Report Type: Spontaneous
  Country: US (occurrence: US)
  Receive Date: 20200420
  Receipt Date: 20200420
  Transmission Date: 20200714
  Serious: No
  Sender: FDA-Public Use
  Company Number: None

PATIENT
  Age: 74 Year
  Sex: Male
  Weight: 95.71 kg

DRUGS (1)
  1. POTASSIUM CITRATE (POTASSIUM CITRATE 10MEQ TAB,SA [Suspect]
     Active Substance: POTASSIUM CITRATE
     Route: 048
     Dates: start: 20171120, end: 20200106

REACTIONS (2)
  - Hyperkalaemia [None]
  - Chronic kidney disease [None]

NARRATIVE: CASE EVENT DATE: 20200106
